FAERS Safety Report 16761262 (Version 3)
Quarter: 2019Q4

REPORT INFORMATION
  Report Type: Report from Study
  Country: US (occurrence: US)
  Receive Date: 20190830
  Receipt Date: 20191015
  Transmission Date: 20200122
  Serious: Yes (Hospitalization)
  Sender: FDA-Public Use
  Company Number: US-BIOGEN-2019BI00770638

PATIENT
  Age: 61 Year
  Sex: Female

DRUGS (15)
  1. IBUPROFEN. [Concomitant]
     Active Substance: IBUPROFEN
     Indication: PRODUCT USED FOR UNKNOWN INDICATION
     Route: 065
  2. AMPYRA [Suspect]
     Active Substance: DALFAMPRIDINE
     Indication: MULTIPLE SCLEROSIS
     Route: 065
     Dates: start: 20140210
  3. PROPYLTHIOUR [Concomitant]
     Indication: PRODUCT USED FOR UNKNOWN INDICATION
     Route: 065
  4. TECFIDERA [Suspect]
     Active Substance: DIMETHYL FUMARATE
     Route: 048
     Dates: start: 20141023
  5. LEVOTHYROXIN [Concomitant]
     Active Substance: LEVOTHYROXINE
     Indication: THYROID HORMONE REPLACEMENT THERAPY
     Route: 065
  6. METHIMAZOLE. [Concomitant]
     Active Substance: METHIMAZOLE
     Indication: PRODUCT USED FOR UNKNOWN INDICATION
     Route: 065
  7. BACLOFEN. [Concomitant]
     Active Substance: BACLOFEN
     Indication: PRODUCT USED FOR UNKNOWN INDICATION
     Route: 065
  8. ALBUTEROL. [Concomitant]
     Active Substance: ALBUTEROL
     Indication: PRODUCT USED FOR UNKNOWN INDICATION
     Route: 065
  9. MEROPENEM. [Concomitant]
     Active Substance: MEROPENEM
     Indication: PRODUCT USED FOR UNKNOWN INDICATION
     Route: 065
  10. TIROSINT [Concomitant]
     Active Substance: LEVOTHYROXINE SODIUM
     Indication: THYROID HORMONE REPLACEMENT THERAPY
     Route: 065
  11. TRAMADOL. [Concomitant]
     Active Substance: TRAMADOL
     Indication: PRODUCT USED FOR UNKNOWN INDICATION
     Route: 065
  12. TECFIDERA [Suspect]
     Active Substance: DIMETHYL FUMARATE
     Indication: MULTIPLE SCLEROSIS
     Route: 048
     Dates: start: 20141022
  13. LEVOTHYROXIN [Concomitant]
     Active Substance: LEVOTHYROXINE
     Route: 065
  14. LEVOTHYROXIN [Concomitant]
     Active Substance: LEVOTHYROXINE
     Dosage: 1/2 TAB (37.5) MCG
     Route: 065
  15. SMZ/TMP [Concomitant]
     Active Substance: SULFAMETHOXAZOLE\TRIMETHOPRIM
     Indication: PRODUCT USED FOR UNKNOWN INDICATION
     Route: 065

REACTIONS (7)
  - Gait disturbance [Unknown]
  - Hyperthyroidism [Recovered/Resolved]
  - Thyroid function test abnormal [Not Recovered/Not Resolved]
  - Post procedural hypothyroidism [Not Recovered/Not Resolved]
  - Dizziness [Recovered/Resolved]
  - Paraesthesia [Not Recovered/Not Resolved]
  - Fall [Recovered/Resolved]

NARRATIVE: CASE EVENT DATE: 20190610
